FAERS Safety Report 5574973-8 (Version None)
Quarter: 2007Q4

REPORT INFORMATION
  Report Type: 
  Country: None (occurrence: None)
  Receive Date: 20071227
  Receipt Date: 20071218
  Transmission Date: 20080405
  Serious: Yes (Hospitalization)
  Sender: FDA-Public Use
  Company Number: B0500517A

PATIENT
  Age: 45 Year
  Sex: Female

DRUGS (5)
  1. ZIAGEN [Suspect]
     Indication: DRUG USE FOR UNKNOWN INDICATION
     Dosage: 300MG PER DAY
     Route: 048
     Dates: start: 20040901
  2. ANSATIPINE [Suspect]
     Dosage: 150MG TWICE PER DAY
     Route: 048
     Dates: start: 20040901
  3. EMTRIVA [Suspect]
     Dosage: 200MG PER DAY
     Route: 048
     Dates: start: 20040901
  4. ZECLAR [Concomitant]
     Route: 048
  5. STILNOX [Concomitant]
     Route: 065

REACTIONS (4)
  - ANTIBODY TEST POSITIVE [None]
  - ARTHRALGIA [None]
  - FALL [None]
  - FRACTURE [None]
